FAERS Safety Report 8317292-9 (Version None)
Quarter: 2012Q1

REPORT INFORMATION
  Report Type: 
  Country: None (occurrence: None)
  Receive Date: 20120315
  Receipt Date: 20110604
  Transmission Date: 20120608
  Serious: Yes (Hospitalization, Other)
  Sender: FDA-Public Use
  Company Number: PHHY2011US01209

PATIENT
  Age: 54 Year
  Sex: Female

DRUGS (11)
  1. CALCIUM CITRATE (CALCIUM CITRATE) [Concomitant]
  2. MAGNESIUM (MAGNESIUM) [Concomitant]
  3. VITAMIN D [Concomitant]
  4. GILENYA [Suspect]
     Indication: RELAPSING-REMITTING MULTIPLE SCLEROSIS
     Dosage: 0.5 MG, QD, ORAL
     Route: 048
     Dates: start: 20110104
  5. LUNESTA (ESZOICLONE) [Concomitant]
  6. AMPYRA [Concomitant]
  7. ASPIRIN [Concomitant]
  8. B COMPLEX (NICOTINAMIDE,PYROXINE HYDROCHLORIDE, RIBOFLAVIN, THIAMINE H [Concomitant]
  9. BACLOFEN [Concomitant]
  10. BIOTIN (BIOTIN) [Concomitant]
  11. LYRICA [Concomitant]

REACTIONS (9)
  - SYNCOPE [None]
  - HEART RATE DECREASED [None]
  - DIZZINESS [None]
  - ATRIOVENTRICULAR BLOCK COMPLETE [None]
  - HYPERHIDROSIS [None]
  - BLOOD PRESSURE INCREASED [None]
  - ELECTROCARDIOGRAM PR PROLONGATION [None]
  - ATRIOVENTRICULAR BLOCK SECOND DEGREE [None]
  - ATRIOVENTRICULAR BLOCK FIRST DEGREE [None]
